FAERS Safety Report 7308692-4 (Version None)
Quarter: 2011Q1

REPORT INFORMATION
  Report Type: 
  Country: None (occurrence: None)
  Receive Date: 20110223
  Receipt Date: 20110211
  Transmission Date: 20110831
  Serious: Yes (Hospitalization)
  Sender: FDA-Public Use
  Company Number: PHHO2010CZ15524

PATIENT
  Sex: Male
  Weight: 112 kg

DRUGS (5)
  1. BLINDED ALISKIREN [Suspect]
     Indication: CARDIAC FAILURE
     Dosage: CODE NOT BROKEN
     Dates: start: 20100408
  2. ALISKIREN [Suspect]
  3. BLINDED NO TREATMENT RECEIVED [Suspect]
     Indication: CARDIAC FAILURE
     Dosage: CODE NOT BROKEN
     Dates: start: 20100408
  4. BLINDED ENALAPRIL [Suspect]
     Indication: CARDIAC FAILURE
     Dosage: CODE NOT BROKEN
     Dates: start: 20100408
  5. COMPARATOR ENALAPRIL [Suspect]

REACTIONS (3)
  - ASTHMA [None]
  - CARDIAC FAILURE [None]
  - PULMONARY OEDEMA [None]
